FAERS Safety Report 5798627-8 (Version None)
Quarter: 2008Q3

REPORT INFORMATION
  Report Type: 
  Country: None (occurrence: None)
  Receive Date: 20080702
  Receipt Date: 20080619
  Transmission Date: 20090109
  Serious: Yes (Hospitalization)
  Sender: FDA-Public Use
  Company Number: US-ELI_LILLY_AND_COMPANY-US200806004864

PATIENT
  Sex: Female
  Weight: 34.014 kg

DRUGS (1)
  1. FORTEO [Suspect]
     Dates: end: 20070101

REACTIONS (3)
  - COLONIC OBSTRUCTION [None]
  - WEIGHT DECREASED [None]
  - WRIST FRACTURE [None]
